FAERS Safety Report 12958417 (Version 1)
Quarter: 2016Q4

REPORT INFORMATION
  Report Type: Spontaneous
  Country: US (occurrence: US)
  Receive Date: 20161121
  Receipt Date: 20161121
  Transmission Date: 20170207
  Serious: No
  Sender: FDA-Public Use
  Company Number: US-TEVA-636657USA

PATIENT
  Sex: Male
  Weight: 108.96 kg

DRUGS (2)
  1. FUROSEMIDE. [Suspect]
     Active Substance: FUROSEMIDE
     Dosage: 160 MILLIGRAM DAILY;
     Dates: start: 20160129
  2. FUROSEMIDE. [Suspect]
     Active Substance: FUROSEMIDE
     Dosage: 80 MILLIGRAM DAILY;
     Dates: start: 201510

REACTIONS (1)
  - Weight increased [Unknown]
